FAERS Safety Report 12696195 (Version 1)
Quarter: 2016Q3

REPORT INFORMATION
  Report Type: Spontaneous
  Country: BR (occurrence: BR)
  Receive Date: 20160829
  Receipt Date: 20160829
  Transmission Date: 20161109
  Serious: Yes (Other)
  Sender: FDA-Public Use
  Company Number: BR-SHIRE-BR201610922

PATIENT
  Age: 58 Year
  Sex: Female

DRUGS (1)
  1. VENVANSE [Suspect]
     Active Substance: LISDEXAMFETAMINE DIMESYLATE
     Indication: ATTENTION DEFICIT/HYPERACTIVITY DISORDER
     Dosage: UNK, UNKNOWN
     Route: 048

REACTIONS (4)
  - Depression [Unknown]
  - Drug dependence [Unknown]
  - Rheumatoid arthritis [Unknown]
  - Insomnia [Unknown]
